FAERS Safety Report 5706115-X (Version None)
Quarter: 2008Q2

REPORT INFORMATION
  Report Type: 
  Country: None (occurrence: None)
  Receive Date: 20080415
  Receipt Date: 20080402
  Transmission Date: 20081010
  Serious: Yes (Life-Threatening, Hospitalization)
  Sender: FDA-Public Use
  Company Number: ES-ROCHE-556426

PATIENT
  Age: 44 Year
  Sex: Male

DRUGS (5)
  1. PEGASYS [Suspect]
     Indication: HEPATITIS C VIRUS
     Dosage: FORMULATION: PREFILLED SYRINGE
     Route: 058
     Dates: start: 20070201, end: 20071108
  2. COPEGUS [Suspect]
     Indication: HEPATITIS C VIRUS
     Dosage: FORMULATION: FILM-COATED TABLETS
     Route: 048
     Dates: start: 20070201, end: 20071108
  3. SUSTIVA [Concomitant]
     Indication: HIV INFECTION
     Dosage: HARD CAPSULES
     Route: 048
     Dates: start: 20070601
  4. KIVEXA [Concomitant]
     Indication: HIV INFECTION
     Dosage: STRENGTH: 600/300 MG , FORMULATION: FILM-COATED TABLET, DOSE: ONE FIX DOSE
     Route: 048
     Dates: start: 20070601
  5. KIVEXA [Concomitant]
     Dosage: STRENGTH: 600/300 MG , FORMULATION: FILM-COATED TABLET, DOSE: ONE FIX DOSE
     Route: 048
     Dates: start: 20070601

REACTIONS (1)
  - MYOCARDITIS [None]
